FAERS Safety Report 8131433-8 (Version None)
Quarter: 2012Q1

REPORT INFORMATION
  Report Type: 
  Country: None (occurrence: None)
  Receive Date: 20120213
  Receipt Date: 20120202
  Transmission Date: 20120608
  Serious: Yes (Other)
  Sender: FDA-Public Use
  Company Number: CA-JNJFOC-20120202747

PATIENT
  Sex: Male
  Weight: 109.6 kg

DRUGS (1)
  1. REMICADE [Suspect]
     Indication: RHEUMATOID ARTHRITIS
     Route: 042

REACTIONS (5)
  - PALLOR [None]
  - HOT FLUSH [None]
  - INFUSION RELATED REACTION [None]
  - HYPERHIDROSIS [None]
  - BLOOD PRESSURE DECREASED [None]
